FAERS Safety Report 8200026-6 (Version None)
Quarter: 2012Q1

REPORT INFORMATION
  Report Type: 
  Country: None (occurrence: None)
  Receive Date: 20120312
  Receipt Date: 20120309
  Transmission Date: 20120608
  Serious: No
  Sender: FDA-Public Use
  Company Number: US-PFIZER INC-2012063543

PATIENT
  Sex: Female
  Weight: 67.574 kg

DRUGS (5)
  1. CHANTIX [Suspect]
     Indication: SMOKING CESSATION THERAPY
     Dosage: UNK
     Dates: start: 20120101
  2. LORTAB [Concomitant]
     Dosage: UNK
  3. OXYCONTIN [Concomitant]
     Dosage: UNK
  4. NEURONTIN [Concomitant]
     Dosage: UNK
  5. KLONOPIN [Concomitant]
     Indication: DEPRESSION
     Dosage: UNK

REACTIONS (2)
  - ABNORMAL DREAMS [None]
  - ABNORMAL BEHAVIOUR [None]
